FAERS Safety Report 11877544 (Version 1)
Quarter: 2015Q4

REPORT INFORMATION
  Report Type: Spontaneous
  Country: BR (occurrence: BR)
  Receive Date: 20151230
  Receipt Date: 20151230
  Transmission Date: 20160305
  Serious: Yes (Other)
  Sender: FDA-Public Use
  Company Number: PHHY2015BR164495

PATIENT
  Age: 6 Year
  Sex: Male
  Weight: 22 kg

DRUGS (4)
  1. TRILEPTAL [Suspect]
     Active Substance: OXCARBAZEPINE
     Dosage: 2.75 ML, UNK
     Route: 048
  2. TRILEPTAL [Suspect]
     Active Substance: OXCARBAZEPINE
     Indication: SEIZURE
     Dosage: 2.5 ML, UNK
     Route: 048
     Dates: start: 201503
  3. TRILEPTAL [Suspect]
     Active Substance: OXCARBAZEPINE
     Dosage: 5 ML, Q12H
     Route: 048
     Dates: end: 20151204
  4. TRILEPTAL [Suspect]
     Active Substance: OXCARBAZEPINE
     Dosage: 4 ML, Q12H
     Route: 048
     Dates: start: 20151204

REACTIONS (16)
  - Mood altered [Recovered/Resolved]
  - Nervousness [Recovered/Resolved]
  - Confusional state [Recovered/Resolved]
  - Seizure [Unknown]
  - Dyskinesia [Recovered/Resolved]
  - Hypokinesia [Recovered/Resolved]
  - Urinary incontinence [Recovered/Resolved]
  - Crying [Recovered/Resolved]
  - Agitation [Recovered/Resolved]
  - Disturbance in attention [Recovered/Resolved]
  - Aggression [Recovered/Resolved]
  - Depressed mood [Recovered/Resolved]
  - Memory impairment [Not Recovered/Not Resolved]
  - Abdominal pain [Not Recovered/Not Resolved]
  - Anxiety [Recovered/Resolved]
  - Anticonvulsant drug level decreased [Unknown]

NARRATIVE: CASE EVENT DATE: 201509
